FAERS Safety Report 10284541 (Version 1)
Quarter: 2014Q3

REPORT INFORMATION
  Report Type: Spontaneous
  Country: US (occurrence: None)
  Receive Date: 20140703
  Receipt Date: 20140703
  Transmission Date: 20150326
  Serious: Yes (Hospitalization)
  Sender: FDA-Public Use
  Company Number: None

PATIENT
  Age: 78 Year
  Sex: Male
  Weight: 73 kg

DRUGS (2)
  1. 5-FLUOROURACIL (5-FU) [Suspect]
     Active Substance: FLUOROURACIL
  2. ELOXATIN [Suspect]
     Active Substance: OXALIPLATIN

REACTIONS (2)
  - Pneumonia [None]
  - Urinary tract infection [None]

NARRATIVE: CASE EVENT DATE: 20140619
